FAERS Safety Report 25329748 (Version 2)
Quarter: 2025Q2

REPORT INFORMATION
  Report Type: Spontaneous
  Country: US (occurrence: US)
  Receive Date: 20250519
  Receipt Date: 20250619
  Transmission Date: 20250717
  Serious: Yes (Other)
  Sender: AMGEN
  Company Number: US-AMGEN-USASP2025094427

PATIENT
  Age: 82 Year
  Sex: Female

DRUGS (25)
  1. TEPEZZA [Suspect]
     Active Substance: TEPROTUMUMAB-TRBW
     Indication: Endocrine ophthalmopathy
     Dosage: 472 MILLIGRAM, Q3WK (FIRST INFUSION) (10 MG/KG)
     Route: 040
     Dates: start: 20210623, end: 20210623
  2. TEPEZZA [Suspect]
     Active Substance: TEPROTUMUMAB-TRBW
     Indication: Graves^ disease
     Dosage: 944 MILLIGRAM, Q3WK (SECOND INFUSION) (20 MG/KG)
     Route: 040
     Dates: start: 20210714, end: 20210714
  3. TEPEZZA [Suspect]
     Active Substance: TEPROTUMUMAB-TRBW
     Dosage: 944 MILLIGRAM, Q3WK (THIRD INFUSION) (20 MG/KG)
     Route: 040
     Dates: start: 20210804, end: 20210804
  4. TEPEZZA [Suspect]
     Active Substance: TEPROTUMUMAB-TRBW
     Dosage: 944 MILLIGRAM, Q3WK (FOURTH INFUSION) (20 MG/KG)
     Route: 040
     Dates: start: 20210825, end: 20210825
  5. TEPEZZA [Suspect]
     Active Substance: TEPROTUMUMAB-TRBW
     Dosage: 944 MILLIGRAM, Q3WK (FIFTH INFUSION) (20 MG/KG)
     Route: 040
     Dates: start: 20210915, end: 20210915
  6. TEPEZZA [Suspect]
     Active Substance: TEPROTUMUMAB-TRBW
     Route: 040
     Dates: start: 202110, end: 202110
  7. RESTASIS [Concomitant]
     Active Substance: CYCLOSPORINE
     Dosage: 1 DROP, BID
     Route: 047
  8. LEXAPRO [Concomitant]
     Active Substance: ESCITALOPRAM OXALATE
     Dosage: 10 MILLIGRAM, QD
     Route: 048
  9. BACITRACIN [Concomitant]
     Active Substance: BACITRACIN
     Dosage: UNK UNK, QD (500 UNIT/GM)
     Route: 065
  10. COMBIGAN [Concomitant]
     Active Substance: BRIMONIDINE TARTRATE\TIMOLOL MALEATE
     Dosage: UNK UNK, QOD ( 0.2-0.5% DROPS)
  11. ERYTHROMYCIN [Concomitant]
     Active Substance: ERYTHROMYCIN
     Dosage: 0.5 PERCENT, QD (5 MG/GRAM)
  12. FLAREX [Concomitant]
     Active Substance: FLUOROMETHOLONE ACETATE
     Dosage: UNK UNK, QOD (0.1 % DROP)
     Route: 065
  13. Adult multivitamin [Concomitant]
     Dosage: UNK UNK, QD
     Route: 048
  14. CALTRATE WITH VITAMIN D [Concomitant]
     Active Substance: CALCIUM CARBONATE\CHOLECALCIFEROL
     Dosage: UNK UNK, QD
     Route: 048
  15. OMEGA-3 ACIDS [Concomitant]
     Active Substance: OMEGA-3 FATTY ACIDS
     Dosage: UNK UNK, QD
     Route: 048
  16. MINERALS\VITAMINS [Concomitant]
     Active Substance: MINERALS\VITAMINS
     Dosage: UNK UNK, QD (250-90-40-1 MG)
     Route: 048
  17. PROBIOTICS NOS [Concomitant]
     Active Substance: PROBIOTICS NOS
     Dosage: UNK UNK, BID ( DOSE 1)
     Route: 048
  18. VITAMIN C [Concomitant]
     Active Substance: ASCORBIC ACID
     Dosage: 500 MILLIGRAM, QD
     Route: 048
  19. VITAMIN D3 [Concomitant]
     Active Substance: CHOLECALCIFEROL
     Dosage: 50 MICROGRAM, QD
     Route: 048
  20. VITAMIN B12 [Concomitant]
     Active Substance: CYANOCOBALAMIN
     Dosage: 2500 MICROGRAM, QD
     Route: 060
  21. BRINZOLAMIDE [Concomitant]
     Active Substance: BRINZOLAMIDE
     Route: 065
  22. BILBERRY [Concomitant]
     Active Substance: BILBERRY
     Route: 048
  23. ZOFRAN [Concomitant]
     Active Substance: ONDANSETRON HYDROCHLORIDE
     Indication: Nausea
     Dosage: 4 MILLIGRAM, Q8H
     Route: 048
  24. ZOFRAN [Concomitant]
     Active Substance: ONDANSETRON HYDROCHLORIDE
     Indication: Vomiting
  25. SODIUM CHLORIDE [Concomitant]
     Active Substance: SODIUM CHLORIDE
     Route: 065

REACTIONS (48)
  - Deafness neurosensory [Not Recovered/Not Resolved]
  - Cerebrovascular accident [Unknown]
  - Endocrine ophthalmopathy [Unknown]
  - Graves^ disease [Unknown]
  - Post procedural hypothyroidism [Unknown]
  - Hyperlipidaemia [Unknown]
  - White blood cell count decreased [Unknown]
  - Monocyte percentage increased [Unknown]
  - Lymphocyte count decreased [Unknown]
  - Blood sodium decreased [Unknown]
  - Blood thyroid stimulating hormone decreased [Unknown]
  - Blood urea nitrogen/creatinine ratio increased [Unknown]
  - Blood alkaline phosphatase decreased [Unknown]
  - Thyroid stimulating immunoglobulin increased [Unknown]
  - High density lipoprotein increased [Unknown]
  - Mean cell haemoglobin increased [Unknown]
  - Mean cell haemoglobin concentration increased [Unknown]
  - Neutrophil count decreased [Unknown]
  - Vitamin B12 increased [Unknown]
  - Blood pressure systolic increased [Unknown]
  - Impaired fasting glucose [Unknown]
  - Vertigo positional [Recovering/Resolving]
  - Rhinitis [Unknown]
  - Blood chloride decreased [Unknown]
  - Dizziness [Unknown]
  - Balance disorder [Unknown]
  - Auditory disorder [Unknown]
  - Arteriosclerosis [Unknown]
  - Basophil count increased [Unknown]
  - Red blood cell count decreased [Unknown]
  - Carbon dioxide increased [Unknown]
  - Anion gap decreased [Unknown]
  - Protein total decreased [Unknown]
  - Eustachian tube disorder [Unknown]
  - Hypercholesterolaemia [Unknown]
  - Vitamin D deficiency [Unknown]
  - Osteopenia [Unknown]
  - Pain [Unknown]
  - Anxiety [Unknown]
  - Emotional distress [Unknown]
  - Impaired quality of life [Unknown]
  - Discomfort [Unknown]
  - Product use complaint [Unknown]
  - Glycosylated haemoglobin increased [Unknown]
  - Blood glucose increased [Unknown]
  - Fatigue [Unknown]
  - Dry skin [Unknown]
  - Tinnitus [Not Recovered/Not Resolved]

NARRATIVE: CASE EVENT DATE: 20210630
